FAERS Safety Report 6355839-2 (Version None)
Quarter: 2009Q3

REPORT INFORMATION
  Report Type: 
  Country: None (occurrence: None)
  Receive Date: 20090915
  Receipt Date: 20090909
  Transmission Date: 20100115
  Serious: Yes (Disabling)
  Sender: FDA-Public Use
  Company Number: BR-BAYER-200921562LA

PATIENT
  Age: 26 Year
  Sex: Male

DRUGS (2)
  1. BETAFERON [Suspect]
     Indication: RELAPSING-REMITTING MULTIPLE SCLEROSIS
     Dosage: HAD NOT INJECTED ON 07-SEP-2009
     Route: 058
     Dates: start: 20090402
  2. METHOTREXATE [Concomitant]
     Indication: IMMUNOSUPPRESSION
     Dosage: PER WEEK
     Route: 048
     Dates: start: 20090803

REACTIONS (2)
  - DIZZINESS [None]
  - MOBILITY DECREASED [None]
